FAERS Safety Report 6527007-2 (Version None)
Quarter: 2009Q4

REPORT INFORMATION
  Report Type: 
  Country: None (occurrence: None)
  Receive Date: 20091229
  Receipt Date: 20091214
  Transmission Date: 20100525
  Serious: Yes (Other)
  Sender: FDA-Public Use
  Company Number: 07-AUR-01533

PATIENT
  Age: 41 Year
  Sex: Female
  Weight: 86 kg

DRUGS (2)
  1. FLUOXETINE [Suspect]
     Indication: DEPRESSION
     Dosage: 20MG - DAILY - ORAL
     Route: 048
     Dates: start: 20070405, end: 20070831
  2. CO-CODAMOL [Concomitant]

REACTIONS (1)
  - ACTIVATED PARTIAL THROMBOPLASTIN TIME ABNORMAL [None]
